FAERS Safety Report 6738805-4 (Version None)
Quarter: 2010Q2

REPORT INFORMATION
  Report Type: 
  Country: None (occurrence: None)
  Receive Date: 20100524
  Receipt Date: 20100519
  Transmission Date: 20101027
  Serious: Yes (Life-Threatening, Hospitalization)
  Sender: FDA-Public Use
  Company Number: SG-CELGENEUS-141-21880-10051536

PATIENT
  Sex: Female
  Weight: 44 kg

DRUGS (10)
  1. REVLIMID [Suspect]
     Route: 048
     Dates: start: 20100219
  2. OSELTAMIVIR PHOSPHATE [Concomitant]
     Indication: INFLUENZA
     Route: 065
     Dates: start: 20100501
  3. TICLOPIDINE HCL [Concomitant]
     Route: 065
     Dates: end: 20100501
  4. AMLODIPINE [Concomitant]
     Indication: HYPERTENSION
     Route: 065
  5. ATENOLOL [Concomitant]
     Indication: HYPERTENSION
     Route: 065
  6. METHYLDOPA [Concomitant]
     Indication: HYPERTENSION
     Route: 065
  7. ISOSORBIDE MONONITRATE [Concomitant]
     Route: 065
  8. DEXAMETHASONE [Concomitant]
     Route: 065
  9. EPOGEN [Concomitant]
     Route: 065
  10. EPOGEN [Concomitant]

REACTIONS (2)
  - INFLUENZA [None]
  - MYOCARDIAL INFARCTION [None]
